FAERS Safety Report 17649066 (Version 3)
Quarter: 2020Q4

REPORT INFORMATION
  Report Type: Spontaneous
  Country: CA (occurrence: CA)
  Receive Date: 20200408
  Receipt Date: 20201112
  Transmission Date: 20210113
  Serious: Yes (Other)
  Sender: FDA-Public Use
  Company Number: CA-SAMSUNG BIOEPIS-SB-2020-11236

PATIENT
  Age: 54 Year
  Sex: Male
  Weight: 118 kg

DRUGS (12)
  1. INFLIXIMAB [Suspect]
     Active Substance: INFLIXIMAB
     Indication: COLITIS ULCERATIVE
     Route: 042
  2. METHOTREXATE. [Concomitant]
     Active Substance: METHOTREXATE
     Indication: PRODUCT USED FOR UNKNOWN INDICATION
     Dosage: UNKNOWN
     Route: 065
  3. XARELTO [Concomitant]
     Active Substance: RIVAROXABAN
     Route: 065
  4. CARBAMAZEPINE. [Concomitant]
     Active Substance: CARBAMAZEPINE
     Indication: PRODUCT USED FOR UNKNOWN INDICATION
     Route: 065
  5. PREDNISONE. [Concomitant]
     Active Substance: PREDNISONE
     Indication: PRODUCT USED FOR UNKNOWN INDICATION
     Route: 048
  6. PREDNISONE. [Concomitant]
     Active Substance: PREDNISONE
     Dosage: UNKNOWN
     Route: 048
  7. DILTIAZEM. [Concomitant]
     Active Substance: DILTIAZEM
     Indication: PRODUCT USED FOR UNKNOWN INDICATION
     Route: 065
  8. METOPROLOL. [Concomitant]
     Active Substance: METOPROLOL
     Indication: PRODUCT USED FOR UNKNOWN INDICATION
     Route: 065
  9. METHOTREXATE. [Concomitant]
     Active Substance: METHOTREXATE
     Route: 065
  10. XARELTO [Concomitant]
     Active Substance: RIVAROXABAN
     Indication: PRODUCT USED FOR UNKNOWN INDICATION
     Dosage: UNKNOWN
     Route: 065
  11. PNEUMOCOCCAL VACCINE CONJ 7V (CRM197) [Concomitant]
     Active Substance: PNEUMOCOCCAL 7-VALENT CONJUGATE VACCINE (DIPHTHERIA CRM197 PROTEIN)
     Indication: PNEUMOCOCCAL INFECTION
     Dosage: UNKNOWN
     Route: 065
  12. ASACOL [Concomitant]
     Active Substance: MESALAMINE
     Indication: PRODUCT USED FOR UNKNOWN INDICATION
     Dosage: ENTERIC COATED
     Route: 065

REACTIONS (13)
  - Insomnia [Recovered/Resolved]
  - Intentional product use issue [Recovered/Resolved]
  - Condition aggravated [Recovered/Resolved]
  - Asthenia [Recovered/Resolved]
  - Diverticulum [Recovered/Resolved]
  - Off label use [Recovered/Resolved]
  - Blood pressure fluctuation [Recovered/Resolved]
  - Mood swings [Recovered/Resolved]
  - Fatigue [Recovered/Resolved]
  - Hypertension [Recovered/Resolved]
  - Abdominal pain upper [Recovered/Resolved]
  - Atrial fibrillation [Recovered/Resolved]
  - Body temperature fluctuation [Recovered/Resolved]
